FAERS Safety Report 19683784 (Version 2)
Quarter: 2021Q3

REPORT INFORMATION
  Report Type: Spontaneous
  Country: CN (occurrence: CN)
  Receive Date: 20210811
  Receipt Date: 20210823
  Transmission Date: 20211014
  Serious: Yes (Hospitalization, Congenital Anomaly, Other)
  Sender: FDA-Public Use
  Company Number: CN-TOPROL-2021000162

PATIENT
  Age: 65 Year
  Sex: Female

DRUGS (8)
  1. BETALOC [Suspect]
     Active Substance: METOPROLOL
     Dosage: THE DOCTOR ASKED TO BREAKING 1/4 TABLETS OF 95MG
     Route: 048
  2. ROSUVASTATIN. [Concomitant]
     Active Substance: ROSUVASTATIN
     Route: 065
  3. AMIODARONE [Concomitant]
     Active Substance: AMIODARONE
     Route: 065
  4. ATORVASTATIN [Concomitant]
     Active Substance: ATORVASTATIN
     Route: 065
  5. BETALOC [Suspect]
     Active Substance: METOPROLOL
     Dosage: WITH MEALS 23.75MG
     Route: 048
     Dates: end: 20210406
  6. XARELTO [Concomitant]
     Active Substance: RIVAROXABAN
     Route: 065
  7. PLAVIX [Concomitant]
     Active Substance: CLOPIDOGREL BISULFATE
     Route: 065
  8. BETALOC [Suspect]
     Active Substance: METOPROLOL
     Dosage: WITH MEALS 47.5MG
     Route: 048
     Dates: start: 20210315

REACTIONS (13)
  - Atrioventricular block second degree [Unknown]
  - Heart rate decreased [Unknown]
  - Cardiac discomfort [Unknown]
  - Blood pressure decreased [Unknown]
  - Arteriosclerosis [Unknown]
  - Condition aggravated [Unknown]
  - Asthenia [Unknown]
  - Sinus node dysfunction [Unknown]
  - Carotid arteriosclerosis [Unknown]
  - Atrial septal defect [Unknown]
  - Atrial fibrillation [Unknown]
  - Wrong technique in product usage process [Unknown]
  - Product use in unapproved indication [Unknown]

NARRATIVE: CASE EVENT DATE: 20210317
